FAERS Safety Report 6876857-1 (Version None)
Quarter: 2010Q3

REPORT INFORMATION
  Report Type: 
  Country: None (occurrence: None)
  Receive Date: 20100727
  Receipt Date: 20100721
  Transmission Date: 20110219
  Serious: Yes (Death)
  Sender: FDA-Public Use
  Company Number: CO-ROCHE-716435

PATIENT
  Sex: Male

DRUGS (3)
  1. CELLCEPT [Suspect]
     Dosage: FREQUENCY:QD
     Route: 048
     Dates: start: 20090715, end: 20100416
  2. PREDNISOLONE [Concomitant]
     Dosage: FREQUENCY:QD
     Route: 048
  3. TACROLIMUS [Concomitant]
     Dosage: FREQUENCY:QD
     Route: 048

REACTIONS (2)
  - DIARRHOEA [None]
  - RENAL FAILURE [None]
